FAERS Safety Report 7020860-8 (Version None)
Quarter: 2010Q3

REPORT INFORMATION
  Report Type: 
  Country: None (occurrence: None)
  Receive Date: 20100929
  Receipt Date: 20100921
  Transmission Date: 20110219
  Serious: Yes (Hospitalization)
  Sender: FDA-Public Use
  Company Number: GXKR2010GB10748

PATIENT
  Age: 57 Year
  Sex: Female

DRUGS (5)
  1. TACROLIMUS (NGX) [Interacting]
     Route: 065
  2. CLARITHROMYCIN [Suspect]
     Indication: PNEUMONIA
     Route: 048
  3. AMOXICILLIN [Concomitant]
     Dosage: UNK MG, QD
     Route: 065
  4. AZATHIOPRINE [Concomitant]
     Dosage: 75 MG, QD
     Route: 065
  5. PREDNISOLONE [Concomitant]
     Dosage: 10 MG, QD
     Route: 065

REACTIONS (6)
  - ANAEMIA [None]
  - DIALYSIS [None]
  - DRUG INTERACTION [None]
  - HAEMOLYTIC URAEMIC SYNDROME [None]
  - PULMONARY EMBOLISM [None]
  - THROMBOCYTOPENIA [None]
